FAERS Safety Report 9900232 (Version 2)
Quarter: 2014Q2

REPORT INFORMATION
  Report Type: Report from Study
  Country: US (occurrence: US)
  Receive Date: 20140215
  Receipt Date: 20140527
  Transmission Date: 20141212
  Serious: Yes (Other)
  Sender: FDA-Public Use
  Company Number: US-ROCHE-1348366

PATIENT
  Age: 65 Year
  Sex: Female
  Weight: 80.5 kg

DRUGS (2)
  1. BEVACIZUMAB [Suspect]
     Indication: BREAST CANCER
     Dosage: CYCLE 90,DAY 1(CYCLE = 3WEEK),30-90 MIN ON DAY 1.?LAST DOSE PRIOR TO SERIOUS ADVERSE EVENT (SAE):03/
     Route: 042
     Dates: start: 20081001, end: 20140103
  2. LETROZOLE [Suspect]
     Indication: BREAST CANCER
     Dosage: LAST DOSE PRIOR TO SERIOUS ADVERSE EVENT (SAE) :29/JAN/2014
     Route: 048
     Dates: start: 20081001

REACTIONS (1)
  - Haemolytic uraemic syndrome [Recovered/Resolved]
